FAERS Safety Report 14272824 (Version 2)
Quarter: 2018Q1

REPORT INFORMATION
  Report Type: Report from Study
  Country: US (occurrence: US)
  Receive Date: 20171211
  Receipt Date: 20180103
  Transmission Date: 20180508
  Serious: Yes (Hospitalization)
  Sender: FDA-Public Use
  Company Number: US-BIOGEN-2017BI00492979

PATIENT
  Age: 42 Year
  Sex: Male
  Weight: 49.03 kg

DRUGS (1)
  1. ZINBRYTA [Suspect]
     Active Substance: DACLIZUMAB
     Indication: MULTIPLE SCLEROSIS
     Route: 058
     Dates: start: 20171003, end: 20171120

REACTIONS (1)
  - Wound [Not Recovered/Not Resolved]

NARRATIVE: CASE EVENT DATE: 20171120
